FAERS Safety Report 12964449 (Version 2)
Quarter: 2017Q1

REPORT INFORMATION
  Report Type: Spontaneous
  Country: DE (occurrence: DE)
  Receive Date: 20161122
  Receipt Date: 20170110
  Transmission Date: 20170428
  Serious: Yes (Life-Threatening, Disabling, Other)
  Sender: FDA-Public Use
  Company Number: GXKR2016DE005166

PATIENT
  Sex: Female
  Weight: 75 kg

DRUGS (6)
  1. SIMVAHEXAL [Suspect]
     Active Substance: SIMVASTATIN
     Indication: HYPERCHOLESTEROLAEMIA
     Dosage: 40 MG, QD
     Route: 048
     Dates: start: 2009, end: 20161018
  2. ULTIBRO [Concomitant]
     Active Substance: GLYCOPYRRONIUM\INDACATEROL
     Indication: CHRONIC OBSTRUCTIVE PULMONARY DISEASE
     Dosage: 1 DF, QD
     Route: 055
     Dates: start: 2015
  3. TAFLOTAN [Concomitant]
     Active Substance: TAFLUPROST
     Indication: OPTIC NERVE DISORDER
     Dosage: 15 UG/ML, UNK
     Route: 065
     Dates: start: 2015
  4. TEBONIN INTENS [Concomitant]
     Indication: TINNITUS
     Dosage: 120 MG, UNK
     Route: 048
     Dates: start: 2014
  5. L-THYROXIN ^HENNING BERLIN^ [Concomitant]
     Indication: HYPOTHYROIDISM
     Dosage: 120 UG, QD
     Route: 048
     Dates: start: 1998
  6. ASPIRIN. [Concomitant]
     Active Substance: ASPIRIN
     Indication: VARICOSE VEIN
     Dosage: 100 MG, QD
     Route: 048
     Dates: start: 2010

REACTIONS (18)
  - Muscle disorder [Recovering/Resolving]
  - Abdominal pain [Recovering/Resolving]
  - Fracture [Unknown]
  - Dyspnoea [Recovering/Resolving]
  - Respiratory distress [Unknown]
  - Blood creatine phosphokinase increased [Unknown]
  - Tinnitus [Recovering/Resolving]
  - Mobility decreased [Unknown]
  - Fall [Unknown]
  - Muscular weakness [Unknown]
  - Muscle spasms [Recovering/Resolving]
  - Chronic obstructive pulmonary disease [Unknown]
  - Balance disorder [Unknown]
  - Polyneuropathy [Unknown]
  - Pruritus generalised [Unknown]
  - Gait disturbance [Unknown]
  - Suffocation feeling [Unknown]
  - Muscle spasms [Unknown]

NARRATIVE: CASE EVENT DATE: 201003
